FAERS Safety Report 9714713 (Version 1)
Quarter: 2013Q4

REPORT INFORMATION
  Report Type: Spontaneous
  Country: DE (occurrence: DE)
  Receive Date: 20131126
  Receipt Date: 20131126
  Transmission Date: 20140711
  Serious: Yes (Other)
  Sender: FDA-Public Use
  Company Number: DE-MYLANLABS-2013S1025888

PATIENT
  Sex: Female
  Weight: 93 kg

DRUGS (1)
  1. CIPROFLOXACIN [Suspect]
     Indication: BRONCHITIS
     Dosage: DAILY DOSE: 2 DF DOSAGE FORM EVERY DAYS
     Dates: start: 20130923, end: 20130925

REACTIONS (5)
  - Dry skin [Recovered/Resolved]
  - Rash generalised [Recovered/Resolved]
  - Skin necrosis [Recovered/Resolved]
  - Skin ulcer [Recovered/Resolved]
  - Type IV hypersensitivity reaction [Recovered/Resolved]
